FAERS Safety Report 9903773 (Version 3)
Quarter: 2014Q1

REPORT INFORMATION
  Report Type: Report from Study
  Country: CA (occurrence: CA)
  Receive Date: 20140218
  Receipt Date: 20140222
  Transmission Date: 20141002
  Serious: Yes (Other)
  Sender: FDA-Public Use
  Company Number: CA-ROCHE-1342174

PATIENT
  Age: 37 Year
  Sex: Female
  Weight: 74.8 kg

DRUGS (4)
  1. RITUXAN [Suspect]
     Indication: GRANULOMATOSIS WITH POLYANGIITIS
     Route: 042
     Dates: start: 20130513
  2. PREDNISONE [Suspect]
     Indication: PRODUCT USED FOR UNKNOWN INDICATION
     Route: 065
     Dates: end: 201312
  3. BROMOCRIPTINE [Concomitant]
  4. SYNTHROID [Concomitant]

REACTIONS (10)
  - Cartilage injury [Unknown]
  - Blood glucose increased [Unknown]
  - Bone loss [Unknown]
  - Pain in extremity [Not Recovered/Not Resolved]
  - Arthralgia [Not Recovered/Not Resolved]
  - Arthralgia [Not Recovered/Not Resolved]
  - Arthralgia [Not Recovered/Not Resolved]
  - Rash [Unknown]
  - Rhinitis [Unknown]
  - Hypotension [Unknown]
